FAERS Safety Report 6057888-0 (Version None)
Quarter: 2009Q1

REPORT INFORMATION
  Report Type: 
  Country: None (occurrence: None)
  Receive Date: 20090126
  Receipt Date: 20090116
  Transmission Date: 20090719
  Serious: Yes (Other)
  Sender: FDA-Public Use
  Company Number: 2008SP023865

PATIENT
  Age: 78 Year
  Sex: Female
  Weight: 65.7716 kg

DRUGS (22)
  1. MIRALAX [Suspect]
     Indication: CONSTIPATION
     Dosage: 17 GM, PO
     Route: 048
     Dates: start: 20080101, end: 20080101
  2. TRAMADOL HCL [Suspect]
     Indication: DRUG USE FOR UNKNOWN INDICATION
     Dosage: 50 MG, TID, PO
     Route: 048
  3. LOTREL [Suspect]
     Indication: DRUG USE FOR UNKNOWN INDICATION
     Dosage: 1 DF, QD; PO
     Route: 048
  4. LESCOL XL [Suspect]
     Indication: DRUG USE FOR UNKNOWN INDICATION
     Dosage: 1 DF, QD, PO
     Route: 048
  5. FOSAMAX [Suspect]
     Indication: DRUG USE FOR UNKNOWN INDICATION
     Dosage: 70 MG, QD, PO
     Route: 048
  6. PLAVIX [Suspect]
     Indication: DRUG USE FOR UNKNOWN INDICATION
     Dosage: 75 MG, QD; PO
     Route: 048
  7. ZETIA [Suspect]
     Indication: DRUG USE FOR UNKNOWN INDICATION
     Dosage: 1 DF QD, PO
     Route: 048
  8. AVAPRO [Suspect]
     Indication: DRUG USE FOR UNKNOWN INDICATION
  9. ALLOPURINOL [Concomitant]
  10. FOLIC ACID [Concomitant]
  11. ASPIRIN [Concomitant]
  12. IRON [Concomitant]
  13. LYRICA [Concomitant]
  14. SYNTHROID [Concomitant]
  15. ZYDONE [Concomitant]
  16. PRILOSEC [Concomitant]
  17. ASCORBIC ACID [Concomitant]
  18. MULTI-VITAMIN [Concomitant]
  19. VITAMIN B COMPLEX CAP [Concomitant]
  20. PROCRIT [Concomitant]
  21. FLONASE [Concomitant]
  22. EPOGEN [Concomitant]

REACTIONS (9)
  - ASTHENIA [None]
  - BLOOD PRESSURE DIASTOLIC DECREASED [None]
  - DEHYDRATION [None]
  - DIZZINESS [None]
  - FATIGUE [None]
  - GASTROENTERITIS [None]
  - HEADACHE [None]
  - HIATUS HERNIA [None]
  - SWOLLEN TONGUE [None]
